FAERS Safety Report 5005828-5 (Version None)
Quarter: 2006Q2

REPORT INFORMATION
  Report Type: 
  Country: None (occurrence: None)
  Receive Date: 20060515
  Receipt Date: 20060501
  Transmission Date: 20061013
  Serious: Yes (Death, Hospitalization)
  Sender: FDA-Public Use
  Company Number: 2006-01036

PATIENT
  Age: 75 Year
  Sex: Male

DRUGS (1)
  1. VELCADE [Suspect]
     Indication: MULTIPLE MYELOMA

REACTIONS (8)
  - ABDOMINAL PAIN [None]
  - ANAEMIA [None]
  - GENERAL PHYSICAL HEALTH DETERIORATION [None]
  - LOSS OF CONSCIOUSNESS [None]
  - NAUSEA [None]
  - PLEURAL EFFUSION [None]
  - PULMONARY OEDEMA [None]
  - VOMITING [None]
